FAERS Safety Report 5978976-0 (Version None)
Quarter: 2008Q4

REPORT INFORMATION
  Report Type: 
  Country: None (occurrence: None)
  Receive Date: 20081204
  Receipt Date: 20080609
  Transmission Date: 20090506
  Serious: No
  Sender: FDA-Public Use
  Company Number: US-ABBOTT-08P-163-0438235-00

PATIENT
  Age: 58 Year
  Sex: Female
  Weight: 95.794 kg

DRUGS (2)
  1. TRICOR [Suspect]
     Indication: BLOOD TRIGLYCERIDES INCREASED
     Dates: end: 20080201
  2. BYETTA [Concomitant]
     Indication: DRUG USE FOR UNKNOWN INDICATION

REACTIONS (6)
  - ABDOMINAL PAIN UPPER [None]
  - HEPATIC STEATOSIS [None]
  - HEPATITIS C [None]
  - LIVER FUNCTION TEST ABNORMAL [None]
  - NAUSEA [None]
  - PANCREATITIS [None]
